FAERS Safety Report 4605988-1 (Version None)
Quarter: 2005Q1

REPORT INFORMATION
  Report Type: 
  Country: None (occurrence: None)
  Receive Date: 20050311
  Receipt Date: 20050307
  Transmission Date: 20050727
  Serious: Yes (Other)
  Sender: FDA-Public Use
  Company Number: 139634

PATIENT
  Age: 40 Year
  Sex: Male

DRUGS (5)
  1. ZYBAN [Suspect]
     Dosage: 150MG PER DAY
     Route: 048
     Dates: start: 20041115, end: 20041122
  2. QUILONUM RETARD [Concomitant]
     Dosage: 42MMOL PER DAY
     Route: 048
  3. REMERGIL [Concomitant]
     Dosage: 45MG PER DAY
     Route: 048
  4. ZOLPIDEM TARTRATE [Concomitant]
     Dosage: 5MG PER DAY
     Route: 048
     Dates: end: 20040101
  5. RISPERDAL [Concomitant]
     Dosage: 6MG PER DAY
     Route: 048

REACTIONS (3)
  - HYPOMANIA [None]
  - MANIA [None]
  - SLEEP DISORDER [None]
